FAERS Safety Report 7241547-2 (Version None)
Quarter: 2011Q1

REPORT INFORMATION
  Report Type: 
  Country: None (occurrence: None)
  Receive Date: 20110119
  Receipt Date: 20110119
  Transmission Date: 20110831
  Serious: Yes (Hospitalization)
  Sender: FDA-Public Use
  Company Number: None

PATIENT
  Sex: Female
  Weight: 104.7809 kg

DRUGS (1)
  1. ALCOHOL PREP PADS 70 % ISOPROPYL ALCOHOL TRIAD [Suspect]

REACTIONS (3)
  - BACILLUS INFECTION [None]
  - BACTERIAL FOOD POISONING [None]
  - PRODUCT CONTAMINATION [None]
